FAERS Safety Report 15676267 (Version 3)
Quarter: 2018Q4

REPORT INFORMATION
  Report Type: Report from Study
  Country: DE (occurrence: DE)
  Receive Date: 20181130
  Receipt Date: 20181226
  Transmission Date: 20190205
  Serious: Yes (Hospitalization)
  Sender: FDA-Public Use
  Company Number: PHHY2018DE167163

PATIENT
  Sex: Female
  Weight: 64 kg

DRUGS (5)
  1. KISQALI [Suspect]
     Active Substance: RIBOCICLIB
     Dosage: 600 MG,  (21 DAYS )
     Route: 050
     Dates: start: 20181204
  2. KISQALI [Suspect]
     Active Substance: RIBOCICLIB
     Dosage: 600 MG,  (21 DAYS )
     Route: 050
     Dates: start: 20181106, end: 20181120
  3. ANASTROZOL [Suspect]
     Active Substance: ANASTROZOLE
     Indication: BREAST CANCER METASTATIC
     Dosage: 1 MG, QD
     Route: 048
     Dates: start: 20180911
  4. KISQALI [Suspect]
     Active Substance: RIBOCICLIB
     Dosage: 600 MG,  (21 DAYS )
     Route: 048
     Dates: start: 20181009, end: 20181029
  5. KISQALI [Suspect]
     Active Substance: RIBOCICLIB
     Indication: BREAST CANCER METASTATIC
     Dosage: 600 MG,  (21 DAYS )
     Route: 048
     Dates: start: 20180911, end: 20181001

REACTIONS (5)
  - Dehydration [Recovered/Resolved]
  - Urinary tract infection [Recovered/Resolved]
  - Confusional state [Unknown]
  - Rash pustular [Recovered/Resolved]
  - Pruritus [Recovering/Resolving]

NARRATIVE: CASE EVENT DATE: 20181009
